FAERS Safety Report 10537900 (Version 1)
Quarter: 2014Q4

REPORT INFORMATION
  Report Type: Spontaneous
  Country: JP (occurrence: JP)
  Receive Date: 20141023
  Receipt Date: 20141023
  Transmission Date: 20150529
  Serious: Yes (Hospitalization)
  Sender: FDA-Public Use
  Company Number: JP-TEVA-516538ISR

PATIENT
  Age: 26 Year
  Sex: Female
  Weight: 46 kg

DRUGS (6)
  1. SHIN-SEDES [Suspect]
     Active Substance: ACETAMINOPHEN\APRONALIDE\CAFFEINE\ETHENZAMIDE
     Indication: PYREXIA
     Dosage: 2 TABLETS, 3 TIMES (80MG PARACETAMOL, 200MG ETHENZAMIDE, 30MG APRONALIDE)
     Route: 050
  2. OSELTAMIVIR [Concomitant]
     Active Substance: OSELTAMIVIR
     Indication: PYREXIA
     Dosage: 1 TABLET
     Route: 050
  3. CEFAZOLIN [Suspect]
     Active Substance: CEFAZOLIN
     Indication: URINARY TRACT INFECTION
     Dosage: 1G
     Route: 065
  4. PIPERACILLIN, TAZOBACTAM [Suspect]
     Active Substance: PIPERACILLIN SODIUM\TAZOBACTAM SODIUM
     Indication: URINARY TRACT INFECTION
     Route: 065
  5. CEFACLOR. [Suspect]
     Active Substance: CEFACLOR
     Indication: URINARY TRACT INFECTION
     Route: 048
  6. GALLIUM CITRATE [Suspect]
     Active Substance: GALLIUM CITRATE GA-67
     Route: 065

REACTIONS (5)
  - Renal tubular necrosis [Recovering/Resolving]
  - Tubulointerstitial nephritis [Recovered/Resolved]
  - Acute kidney injury [Unknown]
  - Kidney enlargement [Recovered/Resolved]
  - Liver injury [Unknown]
